FAERS Safety Report 9915331 (Version 3)
Quarter: 2014Q3

REPORT INFORMATION
  Report Type: Report from Study
  Country: US (occurrence: US)
  Receive Date: 20140221
  Receipt Date: 20140717
  Transmission Date: 20150326
  Serious: Yes (Other)
  Sender: FDA-Public Use
  Company Number: US-ROCHE-1036337

PATIENT

DRUGS (4)
  1. RIBAVIRIN. [Suspect]
     Active Substance: RIBAVIRIN
     Indication: CHRONIC HEPATITIS C
     Dosage: 1000 MG DAILY IN PATIENTS WITH BODY WEIGHT OF {75 KG, AND 1200 MG DAILY IN PATIENTS WITH BODY WEIGHT
     Route: 048
  2. BMS-650032 [Suspect]
     Active Substance: ASUNAPREVIR
     Indication: CHRONIC HEPATITIS C
     Dosage: DRUG NAME REPORTED: ASUNAPREVIR; DOSAGE FORM: PILL 200 MG BID
     Route: 048
  3. BMS-790052 (HCV NS5A INHIBITOR) [Suspect]
     Active Substance: DACLATASVIR
     Indication: CHRONIC HEPATITIS C
     Dosage: DRUG NAME REPORTED: DACLATASVIR
     Route: 048
  4. PEGINTERFERON ALFA-2A [Suspect]
     Active Substance: PEGINTERFERON ALFA-2A
     Indication: CHRONIC HEPATITIS C
     Route: 058

REACTIONS (12)
  - Leukopenia [Unknown]
  - Neutropenia [Unknown]
  - Blood uric acid increased [Unknown]
  - Anaemia [Unknown]
  - Asthenia [Unknown]
  - Overdose [Unknown]
  - Lymphopenia [Unknown]
  - Blood phosphorus decreased [Unknown]
  - Hyponatraemia [Unknown]
  - Aspartate aminotransferase increased [Recovering/Resolving]
  - Depression [Unknown]
  - Alanine aminotransferase increased [Recovering/Resolving]
